FAERS Safety Report 4936116-0 (Version None)
Quarter: 2006Q1

REPORT INFORMATION
  Report Type: 
  Country: None (occurrence: None)
  Receive Date: 20060307
  Receipt Date: 20051026
  Transmission Date: 20060701
  Serious: No
  Sender: FDA-Public Use
  Company Number: US-GLAXOSMITHKLINE-A0579814A

PATIENT
  Age: 67 Year
  Sex: Female

DRUGS (4)
  1. REQUIP [Suspect]
     Indication: RESTLESS LEGS SYNDROME
     Dosage: 1.5MG THREE TIMES PER DAY
     Route: 048
     Dates: start: 20051001
  2. PLAVIX [Concomitant]
     Route: 065
  3. ZETIA [Concomitant]
     Route: 065
  4. COZAAR [Concomitant]
     Route: 065

REACTIONS (2)
  - DRUG INEFFECTIVE [None]
  - SOMNOLENCE [None]
